FAERS Safety Report 5002009-6 (Version None)
Quarter: 2006Q2

REPORT INFORMATION
  Report Type: 
  Country: None (occurrence: None)
  Receive Date: 20060515
  Receipt Date: 20050614
  Transmission Date: 20061013
  Serious: Yes (Hospitalization, Disabling, Other)
  Sender: FDA-Public Use
  Company Number: US-MERCK-0506USA02152

PATIENT
  Age: 64 Year
  Sex: Female
  Weight: 91 kg

DRUGS (3)
  1. VIOXX [Suspect]
     Indication: ARTHRITIS
     Route: 048
     Dates: start: 20000201, end: 20011001
  2. VIOXX [Suspect]
     Route: 048
     Dates: end: 20011101
  3. TYLENOL (CAPLET) [Concomitant]
     Indication: ANALGESIC EFFECT
     Route: 065

REACTIONS (12)
  - ANGINA UNSTABLE [None]
  - ARRHYTHMIA [None]
  - ARTERIOSCLEROSIS CORONARY ARTERY [None]
  - ATRIAL FIBRILLATION [None]
  - CARDIOVASCULAR DISORDER [None]
  - EROSIVE OESOPHAGITIS [None]
  - HEART RATE DECREASED [None]
  - HYPERTENSION [None]
  - MYOCARDIAL INFARCTION [None]
  - OESOPHAGEAL STENOSIS [None]
  - PALPITATIONS [None]
  - SEROMA [None]
